FAERS Safety Report 8409927-7 (Version None)
Quarter: 2012Q2

REPORT INFORMATION
  Report Type: 
  Country: None (occurrence: None)
  Receive Date: 20120605
  Receipt Date: 20120524
  Transmission Date: 20120825
  Serious: Yes (Life-Threatening)
  Sender: FDA-Public Use
  Company Number: DE-BRISTOL-MYERS SQUIBB COMPANY-16516353

PATIENT
  Age: 67 Year
  Sex: Female

DRUGS (5)
  1. SPIRO COMP [Concomitant]
  2. LISINOPRIL [Suspect]
  3. TENORMIN [Concomitant]
  4. SPRYCEL [Suspect]
     Indication: LEUKAEMIA
     Dosage: 1DF=50MG AND 100 MG/DAY FOR 3-4YRS
  5. BLOOD PRESSURE MEDICATION [Concomitant]

REACTIONS (1)
  - ANGIOEDEMA [None]
